FAERS Safety Report 19551392 (Version 2)
Quarter: 2021Q3

REPORT INFORMATION
  Report Type: Spontaneous
  Country: FR (occurrence: FR)
  Receive Date: 20210715
  Receipt Date: 20210802
  Transmission Date: 20211014
  Serious: Yes (Death, Hospitalization, Other)
  Sender: FDA-Public Use
  Company Number: FR-JNJFOC-20210725660

PATIENT
  Age: 74 Year
  Sex: Male
  Weight: 73 kg

DRUGS (17)
  1. INDAPAMIDE. [Concomitant]
     Active Substance: INDAPAMIDE
  2. PERINDOPRIL [Concomitant]
     Active Substance: PERINDOPRIL
  3. XATRAL [Concomitant]
     Active Substance: ALFUZOSIN
  4. PENTASA [Concomitant]
     Active Substance: MESALAMINE
     Dosage: ONE ENEMA IN THE EVENING
     Route: 054
  5. HEPARIN [Suspect]
     Active Substance: HEPARIN SODIUM
     Indication: PRODUCT USED FOR UNKNOWN INDICATION
     Route: 065
     Dates: start: 20210626
  6. FELODIPINE. [Concomitant]
     Active Substance: FELODIPINE
  7. ONBREZ [Concomitant]
     Active Substance: INDACATEROL
     Dosage: 1DOSE IN THE MORNING
     Route: 065
  8. LANSOPRAZOLE. [Concomitant]
     Active Substance: LANSOPRAZOLE
  9. CORTANCYL [Concomitant]
     Active Substance: PREDNISONE
     Route: 065
     Dates: start: 20210628
  10. HUMALOG [Concomitant]
     Active Substance: INSULIN LISPRO
     Dosage: 25 6IU MORNING, 300/3ML 8IU AT NOON
  11. INSULIN RAPID [Concomitant]
     Active Substance: INSULIN NOS
  12. KARDEGIC [Suspect]
     Active Substance: ASPIRIN DL-LYSINE
     Indication: PRODUCT USED FOR UNKNOWN INDICATION
     Route: 065
  13. ISOPTIN [Concomitant]
     Active Substance: VERAPAMIL HYDROCHLORIDE
  14. STELARA [Suspect]
     Active Substance: USTEKINUMAB
     Indication: COLITIS ULCERATIVE
     Route: 058
     Dates: start: 20210111, end: 20210508
  15. CORTANCYL [Concomitant]
     Active Substance: PREDNISONE
     Indication: COLITIS ULCERATIVE
     Route: 065
  16. ROWASA [Concomitant]
     Active Substance: MESALAMINE
     Indication: COLITIS ULCERATIVE
     Route: 065
  17. SIMVASTATIN. [Concomitant]
     Active Substance: SIMVASTATIN

REACTIONS (7)
  - Septic shock [Fatal]
  - Multiple organ dysfunction syndrome [Fatal]
  - Atrial fibrillation [Unknown]
  - Acute respiratory distress syndrome [Unknown]
  - Duodenal ulcer haemorrhage [Unknown]
  - Acute kidney injury [Unknown]
  - Pneumonia [Unknown]

NARRATIVE: CASE EVENT DATE: 20210622
